FAERS Safety Report 16932638 (Version 1)
Quarter: 2019Q4

REPORT INFORMATION
  Report Type: Spontaneous
  Country: US (occurrence: US)
  Receive Date: 20191017
  Receipt Date: 20191017
  Transmission Date: 20200122
  Serious: No
  Sender: FDA-Public Use
  Company Number: US-CELGENEUS-USA-20191004279

PATIENT
  Sex: Female

DRUGS (16)
  1. THALOMID [Suspect]
     Active Substance: THALIDOMIDE
     Dosage: 50 MILLIGRAM
     Route: 048
     Dates: start: 20190916
  2. THALOMID [Suspect]
     Active Substance: THALIDOMIDE
     Dosage: 100MG-50MG
     Route: 048
     Dates: start: 200912
  3. THALOMID [Suspect]
     Active Substance: THALIDOMIDE
     Dosage: 100MG-50MG
     Route: 048
     Dates: start: 201203
  4. THALOMID [Suspect]
     Active Substance: THALIDOMIDE
     Dosage: 50 MILLIGRAM
     Route: 048
     Dates: start: 201603
  5. THALOMID [Suspect]
     Active Substance: THALIDOMIDE
     Dosage: 50MG-100MG
     Route: 048
     Dates: start: 200901
  6. THALOMID [Suspect]
     Active Substance: THALIDOMIDE
     Dosage: 100 MILLIGRAM
     Route: 048
     Dates: start: 201011
  7. THALOMID [Suspect]
     Active Substance: THALIDOMIDE
     Dosage: 50 MILLIGRAM
     Route: 048
     Dates: start: 201407
  8. THALOMID [Suspect]
     Active Substance: THALIDOMIDE
     Dosage: 100 MILLIGRAM
     Route: 048
     Dates: start: 201304
  9. THALOMID [Suspect]
     Active Substance: THALIDOMIDE
     Indication: PRODUCT USED FOR UNKNOWN INDICATION
     Dosage: 50 MILLIGRAM
     Route: 048
     Dates: start: 200607
  10. THALOMID [Suspect]
     Active Substance: THALIDOMIDE
     Dosage: 100 MILLIGRAM
     Route: 048
     Dates: start: 201108
  11. THALOMID [Suspect]
     Active Substance: THALIDOMIDE
     Dosage: 100MG-50MG
     Route: 048
     Dates: start: 201401
  12. THALOMID [Suspect]
     Active Substance: THALIDOMIDE
     Dosage: 50 MILLIGRAM
     Route: 048
     Dates: start: 201704
  13. THALOMID [Suspect]
     Active Substance: THALIDOMIDE
     Dosage: 100MG-200MG
     Route: 048
     Dates: start: 200709
  14. THALOMID [Suspect]
     Active Substance: THALIDOMIDE
     Dosage: 100MG-50MG
     Route: 048
     Dates: start: 201007
  15. THALOMID [Suspect]
     Active Substance: THALIDOMIDE
     Dosage: 100MG-200MG
     Route: 048
     Dates: start: 200608
  16. THALOMID [Suspect]
     Active Substance: THALIDOMIDE
     Dosage: 50 MILLIGRAM
     Route: 048
     Dates: start: 201903

REACTIONS (1)
  - Pain in extremity [Not Recovered/Not Resolved]
